FAERS Safety Report 16118795 (Version 2)
Quarter: 2019Q1

REPORT INFORMATION
  Report Type: Report from Study
  Country: CA (occurrence: CA)
  Receive Date: 20190326
  Receipt Date: 20190329
  Transmission Date: 20190418
  Serious: Yes (Hospitalization, Other)
  Sender: FDA-Public Use
  Company Number: CA-JNJFOC-20190308342

PATIENT
  Age: 14 Year
  Sex: Female
  Weight: 53 kg

DRUGS (4)
  1. STELARA [Suspect]
     Active Substance: USTEKINUMAB
     Indication: CROHN^S DISEASE
     Route: 058
  2. STELARA [Suspect]
     Active Substance: USTEKINUMAB
     Indication: COLITIS ULCERATIVE
     Dosage: STRENGTH = 130 MG
     Route: 058
     Dates: start: 20190219
  3. STELARA [Suspect]
     Active Substance: USTEKINUMAB
     Indication: CROHN^S DISEASE
     Dosage: STRENGTH = 130 MG
     Route: 058
     Dates: start: 20190219
  4. STELARA [Suspect]
     Active Substance: USTEKINUMAB
     Indication: COLITIS ULCERATIVE
     Route: 058

REACTIONS (5)
  - Pyrexia [Unknown]
  - Product use issue [Unknown]
  - Crohn^s disease [Unknown]
  - Syncope [Unknown]
  - Off label use [Unknown]

NARRATIVE: CASE EVENT DATE: 2019
